FAERS Safety Report 4459795-3 (Version None)
Quarter: 2004Q3

REPORT INFORMATION
  Report Type: 
  Country: None (occurrence: None)
  Receive Date: 20040928
  Receipt Date: 20040831
  Transmission Date: 20050211
  Serious: No
  Sender: FDA-Public Use
  Company Number: US-BRISTOL-MYERS SQUIBB COMPANY-12690079

PATIENT
  Sex: Male

DRUGS (1)
  1. KENALOG-40 [Suspect]
     Route: 051

REACTIONS (1)
  - SKIN HYPOPIGMENTATION [None]
